FAERS Safety Report 8425758-6 (Version None)
Quarter: 2012Q2

REPORT INFORMATION
  Report Type: 
  Country: None (occurrence: None)
  Receive Date: 20120611
  Receipt Date: 20120605
  Transmission Date: 20120825
  Serious: Yes (Other)
  Sender: FDA-Public Use
  Company Number: PHHO2011DE019734

PATIENT
  Sex: Female
  Weight: 67.8 kg

DRUGS (4)
  1. EUTHYROX [Concomitant]
     Dosage: 75 MG, UNK
     Dates: start: 19850101
  2. FERROUS SULFATE TAB [Concomitant]
     Dosage: UNK
     Dates: start: 20110501
  3. SPASMEX [Concomitant]
     Dosage: 5 MG, TID
     Dates: start: 20080101
  4. GILENYA [Suspect]
     Dosage: 0.5 MG, UNK
     Dates: start: 20110901, end: 20111122

REACTIONS (1)
  - LENTIGO MALIGNA STAGE UNSPECIFIED [None]
